FAERS Safety Report 6485086-5 (Version None)
Quarter: 2009Q4

REPORT INFORMATION
  Report Type: 
  Country: None (occurrence: None)
  Receive Date: 20091209
  Receipt Date: 20090616
  Transmission Date: 20100525
  Serious: No
  Sender: FDA-Public Use
  Company Number: US-AMGEN-KDL351848

PATIENT
  Sex: Female
  Weight: 74.5 kg

DRUGS (1)
  1. ENBREL [Suspect]
     Indication: RHEUMATOID ARTHRITIS
     Route: 058
     Dates: start: 20070501

REACTIONS (4)
  - EAR INFECTION [None]
  - LOCALISED INFECTION [None]
  - OTORRHOEA [None]
  - SKIN LACERATION [None]
